FAERS Safety Report 15433332 (Version 4)
Quarter: 2019Q1

REPORT INFORMATION
  Report Type: Spontaneous
  Country: CA (occurrence: CA)
  Receive Date: 20180927
  Receipt Date: 20190320
  Transmission Date: 20190417
  Serious: Yes (Other)
  Sender: FDA-Public Use
  Company Number: CA-CELLTRION INC.-2018CA020712

PATIENT

DRUGS (7)
  1. INFLECTRA [Suspect]
     Active Substance: INFLIXIMAB-DYYB
     Indication: COLITIS ULCERATIVE
     Dosage: 280 MG, 0, 2, 6, EVERY 8 WEEKS
     Route: 042
     Dates: start: 20170925, end: 20180103
  2. INFLECTRA [Suspect]
     Active Substance: INFLIXIMAB-DYYB
     Dosage: 380 MG, EVERY 8 WEEKS
     Route: 042
     Dates: start: 20180226, end: 20180611
  3. ASACOL [Concomitant]
     Active Substance: MESALAMINE
     Dosage: 4.8 G
     Dates: start: 201604
  4. INFLECTRA [Suspect]
     Active Substance: INFLIXIMAB-DYYB
     Dosage: 700 MG EVERY 8 WEEKS
     Route: 042
     Dates: start: 20181018
  5. INFLECTRA [Suspect]
     Active Substance: INFLIXIMAB-DYYB
     Dosage: 700 MG EVERY 8 WEEKS
     Route: 042
     Dates: start: 20190207
  6. INFLECTRA [Suspect]
     Active Substance: INFLIXIMAB-DYYB
     Dosage: 380 MG, EVERY 8 WEEKS
     Route: 042
     Dates: start: 20180425
  7. INFLECTRA [Suspect]
     Active Substance: INFLIXIMAB-DYYB
     Dosage: 480 MG, EVERY 8 WEEKS
     Route: 042
     Dates: start: 20180823

REACTIONS (5)
  - Condition aggravated [Unknown]
  - Drug level below therapeutic [Unknown]
  - Faecal calprotectin increased [Unknown]
  - Product use issue [Unknown]
  - Loss of personal independence in daily activities [Unknown]

NARRATIVE: CASE EVENT DATE: 20180912
